FAERS Safety Report 18565565 (Version 1)
Quarter: 2020Q4

REPORT INFORMATION
  Report Type: Spontaneous
  Country: DE (occurrence: DE)
  Receive Date: 20201201
  Receipt Date: 20201201
  Transmission Date: 20210114
  Serious: Yes (Disabling, Other)
  Sender: FDA-Public Use
  Company Number: DE-INSUD PHARMA-2011DE00262

PATIENT

DRUGS (2)
  1. PROGESTERONE. [Suspect]
     Active Substance: PROGESTERONE
     Indication: PRODUCT USED FOR UNKNOWN INDICATION
     Dosage: UNK
     Route: 065
     Dates: start: 202007, end: 202007
  2. NOT REPORTED [Concomitant]

REACTIONS (2)
  - Blindness unilateral [Unknown]
  - Eye infarction [Unknown]

NARRATIVE: CASE EVENT DATE: 202010
